FAERS Safety Report 16810668 (Version 1)
Quarter: 2019Q3

REPORT INFORMATION
  Report Type: Report from Study
  Country: CA (occurrence: CA)
  Receive Date: 20190916
  Receipt Date: 20190916
  Transmission Date: 20191005
  Serious: Yes (Other)
  Sender: FDA-Public Use
  Company Number: CA-PFIZER INC-2019392545

PATIENT
  Age: 38 Year
  Sex: Female

DRUGS (9)
  1. BENADRYL [Concomitant]
     Active Substance: DIPHENHYDRAMINE HYDROCHLORIDE
     Dosage: UNK
  2. ZANTAC [Concomitant]
     Active Substance: RANITIDINE HYDROCHLORIDE
     Dosage: UNK
  3. SOLU-MEDROL [Concomitant]
     Active Substance: METHYLPREDNISOLONE SODIUM SUCCINATE
     Dosage: UNK
  4. ZOVIRAX [Concomitant]
     Active Substance: ACYCLOVIR
     Dosage: UNK
  5. METHYLPREDNISOLONE SODIUM SUCCINATE. [Suspect]
     Active Substance: METHYLPREDNISOLONE SODIUM SUCCINATE
     Indication: PREMEDICATION
     Dosage: 1 MG, 1X/DAY
     Route: 041
  6. TYLENOL [Concomitant]
     Active Substance: ACETAMINOPHEN
     Dosage: UNK
  7. CIPRALEX [Concomitant]
     Active Substance: ESCITALOPRAM OXALATE
     Dosage: UNK
  8. ERGOCALCIFEROL. [Concomitant]
     Active Substance: ERGOCALCIFEROL
     Dosage: UNK
  9. LEMTRADA [Suspect]
     Active Substance: ALEMTUZUMAB
     Indication: MULTIPLE SCLEROSIS
     Dosage: 12 MG, UNK
     Route: 041

REACTIONS (20)
  - Chest discomfort [Unknown]
  - Chills [Unknown]
  - Dental discomfort [Unknown]
  - Epigastric discomfort [Unknown]
  - Gastrooesophageal reflux disease [Unknown]
  - Rash [Unknown]
  - Abdominal discomfort [Unknown]
  - Erythema [Unknown]
  - Joint injury [Unknown]
  - Musculoskeletal stiffness [Unknown]
  - Nausea [Unknown]
  - Asthenia [Unknown]
  - Influenza [Unknown]
  - Cough [Unknown]
  - Dysgeusia [Unknown]
  - Pruritus [Unknown]
  - Multiple sclerosis relapse [Unknown]
  - Sinus congestion [Unknown]
  - Dyspnoea [Unknown]
  - Muscular weakness [Unknown]
